FAERS Safety Report 19971910 (Version 1)
Quarter: 2021Q4

REPORT INFORMATION
  Report Type: Report from Study
  Country: GR (occurrence: GR)
  Receive Date: 20211019
  Receipt Date: 20211019
  Transmission Date: 20220303
  Serious: Yes (Death, Life-Threatening, Hospitalization, Other)
  Sender: FDA-Public Use
  Company Number: GR-ELI_LILLY_AND_COMPANY-GR202110006670

PATIENT
  Age: 81 Year
  Sex: Female

DRUGS (5)
  1. TERIPARATIDE [Suspect]
     Active Substance: TERIPARATIDE
     Indication: Osteoporosis
     Dosage: 20 UG, DAILY
     Route: 058
     Dates: start: 20200304
  2. CARVEDILOL [Concomitant]
     Active Substance: CARVEDILOL
     Indication: Cardiac disorder
     Dosage: 2 DOSAGE FORM, DAILY
     Route: 065
  3. BENSERAZIDE HYDROCHLORIDE\LEVODOPA [Concomitant]
     Active Substance: BENSERAZIDE HYDROCHLORIDE\LEVODOPA
     Indication: Parkinson^s disease
  4. RACTILEN [Concomitant]
     Indication: Parkinson^s disease
     Dosage: 1 DOSAGE FORM, DAILY
  5. MIRAPARKIN [Concomitant]
     Indication: Parkinson^s disease
     Dosage: UNK, DAILY (HALF TABLET DAILY)

REACTIONS (12)
  - Multiple organ dysfunction syndrome [Fatal]
  - Seizure [Unknown]
  - Goitre [Recovered/Resolved]
  - Tracheal compression [Recovered/Resolved]
  - Oxygen saturation decreased [Unknown]
  - Arrhythmia [Unknown]
  - Pulmonary embolism [Unknown]
  - Renal failure [Unknown]
  - Aspiration [Unknown]
  - Oxygen saturation decreased [Unknown]
  - Body temperature increased [Unknown]
  - Peripheral swelling [Recovered/Resolved]

NARRATIVE: CASE EVENT DATE: 20200101
